FAERS Safety Report 4308987-2 (Version None)
Quarter: 2004Q1

REPORT INFORMATION
  Report Type: 
  Country: None (occurrence: None)
  Receive Date: 20040301
  Receipt Date: 20040128
  Transmission Date: 20041129
  Serious: No
  Sender: FDA-Public Use
  Company Number: 7483

PATIENT
  Age: 70 Year
  Sex: Female

DRUGS (1)
  1. PAMIDRONATE DISODIUM [Suspect]
     Indication: METASTASES TO BONE
     Dosage: 90 MG MONTHLY, IV
     Route: 042
     Dates: start: 20000601, end: 20010501

REACTIONS (3)
  - DIALYSIS [None]
  - GLOMERULONEPHRITIS FOCAL [None]
  - RENAL FAILURE [None]
